FAERS Safety Report 12423163 (Version 3)
Quarter: 2016Q3

REPORT INFORMATION
  Report Type: Spontaneous
  Country: US (occurrence: US)
  Receive Date: 20160601
  Receipt Date: 20160720
  Transmission Date: 20161109
  Serious: Yes (Hospitalization, Other)
  Sender: FDA-Public Use
  Company Number: US-PFIZER INC-2016277983

PATIENT
  Age: 80 Year
  Sex: Male
  Weight: 58.6 kg

DRUGS (6)
  1. DOXORUBICIN [Suspect]
     Active Substance: DOXORUBICIN
     Dosage: ALTERNATING REGIMEN- ONE WEEK TAKING EMCYT AND DOCETAXEL, NEXT WEEK TAKING KETOCONAZOLE
  2. EMCYT [Suspect]
     Active Substance: ESTRAMUSTINE PHOSPHATE SODIUM
     Indication: PROSTATE CANCER
     Dosage: 140 MG, 3X/DAY(140MG TWO CAPSULES BY MOUTH THREE TIMES A DAY)
     Route: 048
     Dates: start: 201604
  3. DEXAMETHASONE. [Concomitant]
     Active Substance: DEXAMETHASONE
     Dosage: UNK
  4. HYDROCORTISONE. [Concomitant]
     Active Substance: HYDROCORTISONE
     Dosage: UNK
  5. DOCETAXEL. [Suspect]
     Active Substance: DOCETAXEL
     Dosage: ALTERNATING REGIMEN- ONE WEEK TAKING EMCYT AND DOCETAXEL, NEXT WEEK TAKING KETOCONAZOLE
  6. KETOCONAZOLE. [Suspect]
     Active Substance: KETOCONAZOLE
     Dosage: ALTERNATING REGIMEN- ONE WEEK TAKING EMCYT AND DOCETAXEL, NEXT WEEK TAKING KETOCONAZOLE

REACTIONS (3)
  - Incoherent [Recovering/Resolving]
  - Sepsis [Recovered/Resolved]
  - Liver function test increased [Unknown]
